FAERS Safety Report 14408067 (Version 2)
Quarter: 2018Q2

REPORT INFORMATION
  Report Type: Spontaneous
  Country: FR (occurrence: FR)
  Receive Date: 20180118
  Receipt Date: 20180607
  Transmission Date: 20180711
  Serious: Yes (Hospitalization)
  Sender: FDA-Public Use
  Company Number: FR-PFIZER INC-2018021574

PATIENT
  Age: 54 Year
  Sex: Female

DRUGS (1)
  1. VENLAFAXINE HCL [Suspect]
     Active Substance: VENLAFAXINE HYDROCHLORIDE
     Dosage: 75 MG, UNK
     Route: 065
     Dates: start: 201610, end: 20171120

REACTIONS (15)
  - Diaphragmalgia [Recovered/Resolved]
  - Haematoma [Recovered/Resolved]
  - Aspartate aminotransferase increased [Recovered/Resolved]
  - Paraesthesia [Recovered/Resolved]
  - Fatigue [Recovered/Resolved]
  - Pain in jaw [Recovered/Resolved]
  - Abdominal pain upper [Recovered/Resolved]
  - Hot flush [Not Recovered/Not Resolved]
  - Abdominal pain [Recovered/Resolved]
  - Hepatomegaly [Unknown]
  - Palpitations [Recovered/Resolved]
  - Gamma-glutamyltransferase increased [Recovered/Resolved]
  - Gastrointestinal disorder [Recovered/Resolved]
  - Somnolence [Recovered/Resolved]
  - Alanine aminotransferase increased [Recovered/Resolved]

NARRATIVE: CASE EVENT DATE: 20171111
